FAERS Safety Report 7430456-1 (Version None)
Quarter: 2011Q2

REPORT INFORMATION
  Report Type: 
  Country: None (occurrence: None)
  Receive Date: 20110421
  Receipt Date: 20100521
  Transmission Date: 20111010
  Serious: No
  Sender: FDA-Public Use
  Company Number: US-ASTRAZENECA-2010SE23830

PATIENT
  Sex: Male

DRUGS (2)
  1. METOPROLOL TARTRATE [Suspect]
     Route: 048
  2. TOPROL-XL [Suspect]
     Route: 048
     Dates: start: 20090101

REACTIONS (4)
  - SOMNOLENCE [None]
  - GAIT DISTURBANCE [None]
  - DYSPHAGIA [None]
  - WRONG DRUG ADMINISTERED [None]
